FAERS Safety Report 20401331 (Version 2)
Quarter: 2022Q1

REPORT INFORMATION
  Report Type: Spontaneous
  Country: US (occurrence: US)
  Receive Date: 20220131
  Receipt Date: 20220201
  Transmission Date: 20220423
  Serious: No
  Sender: FDA-Public Use
  Company Number: US-ABBVIE-21K-163-4131958-00

PATIENT
  Age: 60 Year
  Sex: Female
  Weight: 81.720 kg

DRUGS (17)
  1. HUMIRA [Suspect]
     Active Substance: ADALIMUMAB
     Indication: Crohn^s disease
     Route: 058
     Dates: start: 20211015, end: 20211015
  2. HUMIRA [Suspect]
     Active Substance: ADALIMUMAB
     Route: 058
  3. BUSPIRONE [Concomitant]
     Active Substance: BUSPIRONE HYDROCHLORIDE
     Indication: Depression
  4. SPIRONOLACTONE [Concomitant]
     Active Substance: SPIRONOLACTONE
     Indication: Hypertension
  5. METFORMIN HYDROCHLORIDE [Concomitant]
     Active Substance: METFORMIN HYDROCHLORIDE
     Indication: Type 2 diabetes mellitus
  6. COLLAGEN [Concomitant]
     Active Substance: COLLAGEN
     Indication: Supplementation therapy
  7. ASPIRIN [Concomitant]
     Active Substance: ASPIRIN
     Indication: Anticoagulant therapy
  8. IRON [Concomitant]
     Active Substance: IRON
     Indication: Supplementation therapy
  9. DULOXETINE [Concomitant]
     Active Substance: DULOXETINE
     Indication: Antidepressant therapy
  10. METOPROLOL SUCCINATE [Concomitant]
     Active Substance: METOPROLOL SUCCINATE
     Indication: Hypertension
  11. LOSARTAN POTASSIUM [Concomitant]
     Active Substance: LOSARTAN POTASSIUM
     Indication: Hypertension
  12. BIOTIN [Concomitant]
     Active Substance: BIOTIN
     Indication: Supplementation therapy
  13. MONTELUKAST [Concomitant]
     Active Substance: MONTELUKAST SODIUM
     Indication: Product used for unknown indication
  14. BACLOFEN [Concomitant]
     Active Substance: BACLOFEN
     Indication: Pain
  15. TRAMADOL [Concomitant]
     Active Substance: TRAMADOL
     Indication: Pain
  16. CLONAZEPAM [Concomitant]
     Active Substance: CLONAZEPAM
     Indication: Anxiety
  17. PFIZER-BIONTECH COVID-19 VACCINE [Concomitant]
     Active Substance: TOZINAMERAN
     Indication: COVID-19 immunisation
     Dosage: PFIZER
     Route: 030
     Dates: start: 202108, end: 202108

REACTIONS (5)
  - Medication error [Recovered/Resolved]
  - Injection site nodule [Recovering/Resolving]
  - Drug hypersensitivity [Unknown]
  - Pancreatitis [Unknown]
  - Device issue [Recovered/Resolved]

NARRATIVE: CASE EVENT DATE: 20211015
